FAERS Safety Report 25428625 (Version 3)
Quarter: 2025Q3

REPORT INFORMATION
  Report Type: Spontaneous
  Country: JP (occurrence: JP)
  Receive Date: 20250612
  Receipt Date: 20250814
  Transmission Date: 20251021
  Serious: Yes (Hospitalization, Other)
  Sender: PIERRE FABRE MEDICAMENT
  Company Number: JP-maruho-EVD202500847PFM

PATIENT
  Age: 23 Month
  Sex: Male
  Weight: 9.6 kg

DRUGS (3)
  1. PROPRANOLOL HYDROCHLORIDE [Suspect]
     Active Substance: PROPRANOLOL HYDROCHLORIDE
     Indication: Infantile haemangioma
     Dosage: 3 ML, BID (2/DAY)
  2. FAMOTIDINE [Concomitant]
     Active Substance: FAMOTIDINE
     Indication: Product used for unknown indication
     Dosage: 2 MG, BID (2/DAY), POWDER
  3. MOSAPRIDE CITRATE [Concomitant]
     Active Substance: MOSAPRIDE CITRATE
     Indication: Product used for unknown indication
     Dosage: 0.66 MG, TID (3/DAY)

REACTIONS (9)
  - Hypoglycaemia [Recovered/Resolved with Sequelae]
  - Hypoglycaemic encephalopathy [Recovered/Resolved with Sequelae]
  - Pneumonia aspiration [Recovering/Resolving]
  - Hypoventilation [Recovering/Resolving]
  - Ascites [Recovering/Resolving]
  - Tricuspid valve incompetence [Recovering/Resolving]
  - Pyrexia [Recovering/Resolving]
  - Febrile convulsion [Recovering/Resolving]
  - Device dislocation [Unknown]

NARRATIVE: CASE EVENT DATE: 20250120
